FAERS Safety Report 17083642 (Version 5)
Quarter: 2020Q1

REPORT INFORMATION
  Report Type: Spontaneous
  Country: NL (occurrence: NL)
  Receive Date: 20191127
  Receipt Date: 20200203
  Transmission Date: 20200409
  Serious: Yes (Death, Hospitalization, Other)
  Sender: FDA-Public Use
  Company Number: NL-MYLANLABS-2019M1115350

PATIENT
  Age: 54 Year
  Sex: Female

DRUGS (9)
  1. METHADONE [Suspect]
     Active Substance: METHADONE HYDROCHLORIDE
     Dosage: UNK, TAPERED OFF
  2. RISPERIDONE. [Suspect]
     Active Substance: RISPERIDONE
     Indication: PRODUCT USED FOR UNKNOWN INDICATION
     Dosage: 2 MG, UNKNOWN FREQ.
     Route: 065
  3. COCAINE [Suspect]
     Active Substance: COCAINE
     Indication: PRODUCT USED FOR UNKNOWN INDICATION
     Dosage: 45 MG, UNK
     Route: 065
  4. LORAZEPAM. [Suspect]
     Active Substance: LORAZEPAM
     Dosage: UNK UNK, UNKNOWN FREQ.
     Route: 065
  5. METHADONE [Suspect]
     Active Substance: METHADONE HYDROCHLORIDE
     Dosage: 45 MILLIGRAM, QD
     Route: 065
  6. METHADONE [Suspect]
     Active Substance: METHADONE HYDROCHLORIDE
     Indication: PRODUCT USED FOR UNKNOWN INDICATION
     Dosage: 150 MILLIGRAM (150 MG, UNK)
     Route: 065
  7. LORAZEPAM. [Suspect]
     Active Substance: LORAZEPAM
     Indication: CATATONIA
     Dosage: 4.5 MILLIGRAM, Q6H
     Route: 065
  8. RISPERIDONE. [Suspect]
     Active Substance: RISPERIDONE
     Dosage: 2 MG, UNK, DAIILY
     Route: 065
  9. METHADONE [Suspect]
     Active Substance: METHADONE HYDROCHLORIDE
     Dosage: 25 MILLIGRAM, QD
     Route: 065

REACTIONS (44)
  - Pupillary light reflex tests abnormal [Fatal]
  - Metabolic encephalopathy [Fatal]
  - Pyrexia [Fatal]
  - Alanine aminotransferase increased [Fatal]
  - Restlessness [Fatal]
  - Dysphoria [Fatal]
  - Mutism [Fatal]
  - C-reactive protein increased [Fatal]
  - Mental impairment [Fatal]
  - Delirium [Fatal]
  - Loss of consciousness [Fatal]
  - Lung infiltration [Fatal]
  - General physical health deterioration [Fatal]
  - Confusional state [Fatal]
  - Pneumonia [Fatal]
  - Toxicity to various agents [Fatal]
  - Unresponsive to stimuli [Fatal]
  - Renal impairment [Fatal]
  - Memory impairment [Fatal]
  - Stupor [Fatal]
  - Hyperreflexia [Fatal]
  - Hyporeflexia [Fatal]
  - Septic shock [Fatal]
  - Aspartate aminotransferase increased [Fatal]
  - Toxic leukoencephalopathy [Fatal]
  - Hypertension [Fatal]
  - Abnormal behaviour [Fatal]
  - Muscle rigidity [Fatal]
  - Aggression [Fatal]
  - Apraxia [Fatal]
  - Catatonia [Fatal]
  - Hypoxia [Fatal]
  - Echolalia [Fatal]
  - Influenza like illness [Fatal]
  - Pulmonary sepsis [Fatal]
  - Disorientation [Fatal]
  - Neuroleptic malignant syndrome [Fatal]
  - Hypotonia [Fatal]
  - Tachycardia [Fatal]
  - Drug withdrawal syndrome [Fatal]
  - Blood creatine phosphokinase increased [Fatal]
  - Tachypnoea [Fatal]
  - Bradypnoea [Fatal]
  - Hypotension [Fatal]
